FAERS Safety Report 5442967-9 (Version None)
Quarter: 2007Q3

REPORT INFORMATION
  Report Type: 
  Country: None (occurrence: None)
  Receive Date: 20070905
  Receipt Date: 20070903
  Transmission Date: 20080115
  Serious: Yes (Life-Threatening)
  Sender: FDA-Public Use
  Company Number: AU-BRISTOL-MYERS SQUIBB COMPANY-13896386

PATIENT
  Age: 71 Year
  Sex: Female

DRUGS (2)
  1. PRAVACHOL [Suspect]
  2. STAVUDINE [Suspect]

REACTIONS (3)
  - DEPRESSION SUICIDAL [None]
  - FLUSHING [None]
  - HYPERSENSITIVITY [None]
